FAERS Safety Report 9826979 (Version 1)
Quarter: 2014Q1

REPORT INFORMATION
  Report Type: Spontaneous
  Country: US (occurrence: US)
  Receive Date: 20140117
  Receipt Date: 20140117
  Transmission Date: 20141002
  Serious: No
  Sender: FDA-Public Use
  Company Number: US-GLAXOSMITHKLINE-A1023704A

PATIENT
  Age: 74 Year
  Sex: Female
  Weight: 67.3 kg

DRUGS (10)
  1. PROMACTA [Suspect]
     Indication: IMMUNE THROMBOCYTOPENIC PURPURA
     Dosage: 50MG PER DAY
     Route: 048
     Dates: start: 201211
  2. PREDNISONE [Concomitant]
  3. TUSSINEX [Concomitant]
  4. VICODIN [Concomitant]
  5. AMLODIPINE [Concomitant]
  6. BENADRYL [Concomitant]
  7. CALCIUM SUPPLEMENT [Concomitant]
  8. CENTRUM SILVER [Concomitant]
  9. DIOVAN [Concomitant]
  10. NEXIUM [Concomitant]

REACTIONS (3)
  - Blood urine present [Not Recovered/Not Resolved]
  - Coombs test negative [Not Recovered/Not Resolved]
  - Blood lactate dehydrogenase increased [Not Recovered/Not Resolved]
